FAERS Safety Report 9212813 (Version 2)
Quarter: 2013Q2

REPORT INFORMATION
  Report Type: Spontaneous
  Country: US (occurrence: US)
  Receive Date: 20130405
  Receipt Date: 20130521
  Transmission Date: 20140414
  Serious: Yes (Other)
  Sender: FDA-Public Use
  Company Number: US-AMGEN-USASP2013012277

PATIENT
  Age: 51 Year
  Sex: Female
  Weight: 81 kg

DRUGS (6)
  1. ENBREL [Suspect]
     Indication: RHEUMATOID ARTHRITIS
     Dosage: 50 MG, QWK
     Route: 058
     Dates: start: 20030201, end: 20130320
  2. METHOTREXATE [Concomitant]
     Dosage: 2.5 MG, UNK
  3. VICODIN [Concomitant]
     Dosage: 5-500 MG
  4. PERCOCET                           /00446701/ [Concomitant]
     Dosage: 5-325 MG
  5. MELOXICAM [Concomitant]
     Dosage: 15 MG, UNK
  6. PREDNISONE [Concomitant]
     Dosage: 5 MG, UNK

REACTIONS (6)
  - Pterygium [Recovered/Resolved]
  - Sinus disorder [Unknown]
  - Joint swelling [Not Recovered/Not Resolved]
  - Fatigue [Not Recovered/Not Resolved]
  - Musculoskeletal stiffness [Not Recovered/Not Resolved]
  - Hypertension [Not Recovered/Not Resolved]
